FAERS Safety Report 22070922 (Version 1)
Quarter: 2023Q1

REPORT INFORMATION
  Report Type: Spontaneous
  Country: US (occurrence: US)
  Receive Date: 20230307
  Receipt Date: 20230307
  Transmission Date: 20230418
  Serious: No
  Sender: FDA-Public Use
  Company Number: US-JNJFOC-20230311257

PATIENT
  Age: 28 Year
  Sex: Male
  Weight: 86.260 kg

DRUGS (1)
  1. REMICADE [Suspect]
     Active Substance: INFLIXIMAB
     Indication: Colitis ulcerative
     Route: 041
     Dates: start: 202302

REACTIONS (3)
  - Oral infection [Unknown]
  - Tooth fracture [Unknown]
  - Toothache [Unknown]
